FAERS Safety Report 8233936-4 (Version None)
Quarter: 2012Q1

REPORT INFORMATION
  Report Type: 
  Country: None (occurrence: None)
  Receive Date: 20120323
  Receipt Date: 20120323
  Transmission Date: 20120608
  Serious: Yes (Hospitalization)
  Sender: FDA-Public Use
  Company Number: None

PATIENT
  Age: 78 Year
  Sex: Male
  Weight: 62.1 kg

DRUGS (1)
  1. FOSINOPRIL SODIUM [Suspect]
     Indication: HYPERTENSION
     Dosage: 20 MG EVERY DAY PO
     Route: 048
     Dates: start: 20090319, end: 20120317

REACTIONS (1)
  - ANGIOEDEMA [None]
